FAERS Safety Report 6959931-0 (Version None)
Quarter: 2010Q3

REPORT INFORMATION
  Report Type: 
  Country: None (occurrence: None)
  Receive Date: 20100901
  Receipt Date: 20100823
  Transmission Date: 20110219
  Serious: Yes (Death, Other)
  Sender: FDA-Public Use
  Company Number: CA-JNJFOC-20100601740

PATIENT
  Sex: Female
  Weight: 32.6 kg

DRUGS (1)
  1. REMICADE [Suspect]
     Indication: COLITIS ULCERATIVE
     Dosage: DAILY DOSE REPORTED AS ^EVERY 6^
     Route: 042

REACTIONS (1)
  - SQUAMOUS CELL CARCINOMA [None]
